FAERS Safety Report 21285324 (Version 1)
Quarter: 2022Q3

REPORT INFORMATION
  Report Type: Spontaneous
  Country: US (occurrence: None)
  Receive Date: 20220902
  Receipt Date: 20220902
  Transmission Date: 20221027
  Serious: Yes (Life-Threatening, Disabling)
  Sender: FDA-Public Use
  Company Number: 2022A304768

PATIENT
  Sex: Male

DRUGS (1)
  1. SEROQUEL [Suspect]
     Active Substance: QUETIAPINE FUMARATE
     Route: 048

REACTIONS (9)
  - Disability [Unknown]
  - Suicide attempt [Unknown]
  - Drug dependence [Unknown]
  - Substance abuse [Unknown]
  - Nerve block [Unknown]
  - Nerve injury [Unknown]
  - Loss of personal independence in daily activities [Unknown]
  - Drug withdrawal syndrome [Unknown]
  - Product prescribing issue [Unknown]
